FAERS Safety Report 5775945-0 (Version None)
Quarter: 2008Q2

REPORT INFORMATION
  Report Type: 
  Country: None (occurrence: None)
  Receive Date: 20080613
  Receipt Date: 20080530
  Transmission Date: 20081010
  Serious: Yes (Death)
  Sender: FDA-Public Use
  Company Number: 2008S1009406

PATIENT
  Age: 44 Year
  Sex: Female
  Weight: 90.7194 kg

DRUGS (16)
  1. CHANTIX [Suspect]
     Indication: SMOKING CESSATION THERAPY
     Dosage: 0.5 MG; DAILY; ORAL
     Route: 048
     Dates: start: 20070802, end: 20070811
  2. PREVACID [Suspect]
     Indication: NAUSEA
     Dosage: 30 MG; DAILY; ORAL
     Route: 048
     Dates: start: 20060101
  3. ACETAMINOPHEN AND HYDROCODONE BITARTRATE [Suspect]
     Indication: PAIN
     Dosage: ; AS NEEDED; ORAL
     Route: 048
     Dates: start: 19880101
  4. TEMAZEPAM [Suspect]
     Indication: INSOMNIA
     Dosage: 15 MG; DAILY; ORAL
     Route: 048
  5. ZOLPIDEM TARTRATE [Suspect]
     Indication: INSOMNIA
     Dosage: 10 MG; DAILY; ORAL
     Route: 048
  6. MIRTAZAPINE [Suspect]
     Indication: DEPRESSION
     Dosage: 90 MG; DAILY; ORAL
     Route: 048
     Dates: start: 20000101
  7. PROMETHAZINE [Suspect]
     Indication: NAUSEA
     Dosage: ORAL; EVERY 4 HOURS;
     Route: 048
     Dates: start: 20060101
  8. ZOFRAN [Suspect]
     Indication: NAUSEA
     Dosage: 8 MG; 3 TIMES A DAY; ORAL
     Route: 048
     Dates: start: 20070201
  9. KLONOPIN [Concomitant]
  10. NEURONTIN [Concomitant]
  11. LITHIUM CARBONATE [Concomitant]
  12. RISPERDAL [Concomitant]
  13. TRAZODONE HCL [Concomitant]
  14. PROVIGIL [Concomitant]
  15. METHOCARBAMOL [Concomitant]
  16. ASTELIN /00085801/ [Concomitant]

REACTIONS (9)
  - COLD SWEAT [None]
  - DRUG INTERACTION [None]
  - EMPHYSEMA [None]
  - EPISTAXIS [None]
  - HAEMORRHAGE [None]
  - MUSCULOSKELETAL STIFFNESS [None]
  - PULMONARY CONGESTION [None]
  - SKIN DISCOLOURATION [None]
  - THERAPEUTIC AGENT TOXICITY [None]
